FAERS Safety Report 4376311-5 (Version None)
Quarter: 2004Q2

REPORT INFORMATION
  Report Type: 
  Country: None (occurrence: None)
  Receive Date: 20040608
  Receipt Date: 20030411
  Transmission Date: 20050107
  Serious: Yes (Hospitalization, Other)
  Sender: FDA-Public Use
  Company Number: 200311215BCC

PATIENT
  Age: 80 Year
  Sex: Female
  Weight: 68.0396 kg

DRUGS (4)
  1. ALEVE [Suspect]
     Dosage: 220-440 MG, QD, ORAL
     Route: 048
     Dates: end: 20030102
  2. HIGH BLOOD PRESSURE MEDICATION [Concomitant]
  3. VITAMIN C [Concomitant]
  4. CALCIUM WITH VITAMIN D [Concomitant]

REACTIONS (4)
  - DIARRHOEA [None]
  - FAECES DISCOLOURED [None]
  - HAEMATEMESIS [None]
  - ULCER HAEMORRHAGE [None]
